FAERS Safety Report 8473954-4 (Version None)
Quarter: 2012Q2

REPORT INFORMATION
  Report Type: 
  Country: None (occurrence: None)
  Receive Date: 20120628
  Receipt Date: 20120314
  Transmission Date: 20120825
  Serious: Yes (Other)
  Sender: FDA-Public Use
  Company Number: US-MYLANLABS-2012S1004052

PATIENT
  Age: 12 Year
  Sex: Male

DRUGS (6)
  1. CLOZAPINE [Suspect]
     Route: 048
     Dates: start: 20120305, end: 20120312
  2. FOCALIN [Concomitant]
  3. ALPRAZOLAM [Concomitant]
  4. DESMOPRESSIN ACETATE [Concomitant]
  5. BUSPIRONE HCL [Concomitant]
  6. CLOZAPINE [Suspect]
     Route: 048

REACTIONS (1)
  - GRANULOCYTOPENIA [None]
